FAERS Safety Report 4627035-8 (Version None)
Quarter: 2005Q2

REPORT INFORMATION
  Report Type: 
  Country: None (occurrence: None)
  Receive Date: 20050401
  Receipt Date: 20050401
  Transmission Date: 20051028
  Serious: Yes (Other)
  Sender: FDA-Public Use
  Company Number: None

PATIENT
  Age: 38 Year
  Sex: Female
  Weight: 65.7716 kg

DRUGS (1)
  1. ATENOLOL [Suspect]
     Indication: HYPERTENSION
     Dosage: 50 MG ONE TAB PO QD
     Route: 048
     Dates: start: 20041217, end: 20050128

REACTIONS (2)
  - PARAESTHESIA [None]
  - PARAESTHESIA ORAL [None]
